FAERS Safety Report 21552680 (Version 6)
Quarter: 2023Q2

REPORT INFORMATION
  Report Type: Report from Study
  Country: US (occurrence: US)
  Receive Date: 20221104
  Receipt Date: 20230510
  Transmission Date: 20230722
  Serious: Yes (Other)
  Sender: FDA-Public Use
  Company Number: US-ABBVIE-4186628

PATIENT
  Age: 65 Year
  Sex: Male

DRUGS (5)
  1. IMBRUVICA [Suspect]
     Active Substance: IBRUTINIB
     Indication: Mantle cell lymphoma
     Route: 048
     Dates: start: 20211227, end: 202209
  2. IMBRUVICA [Suspect]
     Active Substance: IBRUTINIB
     Indication: Mantle cell lymphoma
     Dosage: DRUG START DATE OF SECOND REGIMEN SHOULD BE 2022
     Route: 048
  3. IMBRUVICA [Suspect]
     Active Substance: IBRUTINIB
     Indication: Mantle cell lymphoma
     Dosage: DRUG START DATE AND DATE 2022
     Route: 048
  4. PREDNISONE [Suspect]
     Active Substance: PREDNISONE
     Indication: Product used for unknown indication
     Route: 065
  5. PREDNISONE [Suspect]
     Active Substance: PREDNISONE
     Indication: Product used for unknown indication
     Route: 065

REACTIONS (19)
  - Foot fracture [Unknown]
  - Illness [Unknown]
  - Rash [Unknown]
  - Diarrhoea [Unknown]
  - Unevaluable event [Unknown]
  - Cough [Unknown]
  - Tooth abscess [Unknown]
  - Lung disorder [Unknown]
  - Blood iron decreased [Unknown]
  - Skin disorder [Unknown]
  - Haemochromatosis [Unknown]
  - Contusion [Unknown]
  - Epistaxis [Unknown]
  - Splenomegaly [Unknown]
  - Blood glucose abnormal [Unknown]
  - Pneumonia [Unknown]
  - Unevaluable event [Unknown]
  - Blood pressure abnormal [Unknown]
  - Red blood cell count abnormal [Unknown]

NARRATIVE: CASE EVENT DATE: 20221001
